FAERS Safety Report 4578948-7 (Version None)
Quarter: 2005Q1

REPORT INFORMATION
  Report Type: 
  Country: None (occurrence: None)
  Receive Date: 20050211
  Receipt Date: 20050207
  Transmission Date: 20050727
  Serious: Yes (Death)
  Sender: FDA-Public Use
  Company Number: US-MERCK-0502USA00654

PATIENT
  Age: 74 Year
  Sex: Male

DRUGS (4)
  1. INVANZ [Suspect]
     Indication: CELLULITIS
     Route: 042
     Dates: start: 20050125, end: 20050204
  2. INVANZ [Suspect]
     Indication: GANGRENE
     Route: 042
     Dates: start: 20050125, end: 20050204
  3. ROCEPHIN [Concomitant]
     Route: 065
  4. [THERAPY UNSPECIFIED] [Concomitant]
     Route: 065

REACTIONS (1)
  - MYOCARDIAL INFARCTION [None]
